FAERS Safety Report 8610098-2 (Version None)
Quarter: 2012Q3

REPORT INFORMATION
  Report Type: 
  Country: None (occurrence: None)
  Receive Date: 20120822
  Receipt Date: 20120816
  Transmission Date: 20120928
  Serious: No
  Sender: FDA-Public Use
  Company Number: US-BIOGENIDEC-2011BI036875

PATIENT
  Age: 60 Year
  Sex: Female

DRUGS (5)
  1. LISINOPRIL [Concomitant]
     Indication: HYPERTENSION
  2. EFFEXOR [Concomitant]
     Indication: DEPRESSION
     Dates: start: 20110101
  3. EFFEXOR [Concomitant]
     Indication: STRESS
     Dates: start: 20110101
  4. TYSABRI [Suspect]
     Indication: MULTIPLE SCLEROSIS
     Route: 042
     Dates: start: 20101207
  5. ATENOLOL [Concomitant]
     Indication: HYPERTENSION

REACTIONS (3)
  - DEPRESSION [None]
  - INSOMNIA [None]
  - STRESS [None]
